FAERS Safety Report 5010572-4 (Version None)
Quarter: 2006Q2

REPORT INFORMATION
  Report Type: 
  Country: None (occurrence: None)
  Receive Date: 20060525
  Receipt Date: 20060425
  Transmission Date: 20061013
  Serious: No
  Sender: FDA-Public Use
  Company Number: US-GLAXOSMITHKLINE-A0603266A

PATIENT
  Age: 48 Year
  Sex: Male

DRUGS (3)
  1. EPZICOM [Suspect]
     Indication: HIV INFECTION
     Dosage: 1TAB PER DAY
     Route: 048
     Dates: start: 20051101, end: 20060420
  2. LEXIVA [Suspect]
     Indication: HIV INFECTION
     Dosage: 700MG TWICE PER DAY
     Route: 048
     Dates: end: 20060420
  3. RITONAVIR [Concomitant]

REACTIONS (5)
  - BACK PAIN [None]
  - HAEMATURIA [None]
  - MALAISE [None]
  - PYREXIA [None]
  - RASH GENERALISED [None]
